FAERS Safety Report 8988874 (Version 1)
Quarter: 2012Q4

REPORT INFORMATION
  Report Type: Spontaneous
  Country: US (occurrence: None)
  Receive Date: 20121220
  Receipt Date: 20121220
  Transmission Date: 20130627
  Serious: Yes (Other)
  Sender: FDA-Public Use
  Company Number: 143389

PATIENT
  Age: 69 Year
  Sex: Female
  Weight: 59 kg

DRUGS (1)
  1. CARBOPLATIN [Suspect]
     Indication: OVARIAN CANCER

REACTIONS (15)
  - Malaise [None]
  - Abdominal discomfort [None]
  - Back pain [None]
  - Musculoskeletal pain [None]
  - Memory impairment [None]
  - Neuropathy peripheral [None]
  - Arthralgia [None]
  - Pain [None]
  - Musculoskeletal stiffness [None]
  - Myalgia [None]
  - Pain in extremity [None]
  - Pain in extremity [None]
  - Oedema peripheral [None]
  - Oedema peripheral [None]
  - Ovarian cancer [None]
